FAERS Safety Report 6345265-4 (Version None)
Quarter: 2009Q3

REPORT INFORMATION
  Report Type: 
  Country: None (occurrence: None)
  Receive Date: 20090909
  Receipt Date: 20090902
  Transmission Date: 20100115
  Serious: Yes (Other)
  Sender: FDA-Public Use
  Company Number: PHHY2009JP37579

PATIENT
  Age: 75 Year
  Sex: Female

DRUGS (1)
  1. METOPROLOL [Suspect]

REACTIONS (2)
  - MITRAL VALVE INCOMPETENCE [None]
  - PRINZMETAL ANGINA [None]
